FAERS Safety Report 5961129-X (Version None)
Quarter: 2008Q4

REPORT INFORMATION
  Report Type: 
  Country: None (occurrence: None)
  Receive Date: 20081119
  Receipt Date: 20081107
  Transmission Date: 20090506
  Serious: Yes (Other)
  Sender: FDA-Public Use
  Company Number: GXKR2008IT10676

PATIENT
  Age: 47 Year
  Sex: Female

DRUGS (10)
  1. DOXORUBICIN HCL [Suspect]
     Indication: DIFFUSE LARGE B-CELL LYMPHOMA
     Dosage: 50 MG/M2, ON WEEKS 1, 3, 5, 7, 9 AND 11,
  2. ETOPOSIDE [Suspect]
     Indication: DIFFUSE LARGE B-CELL LYMPHOMA
     Dosage: SEE IMAGE
  3. .. [Suspect]
  4. VINCRISTINE [Suspect]
     Indication: DIFFUSE LARGE B-CELL LYMPHOMA
     Dosage: 1.4 MG/M2(MAXIMUM DOSE 2 MG), WEEKS 2, 4, 6, 8, 10, 12
  5. BLEOMYCIN SULFATE [Suspect]
     Indication: DIFFUSE LARGE B-CELL LYMPHOMA
     Dosage: 10 U/M2, ON WEEKS 2, 4, 6, 8, 10 AND 12,
  6. PREDNISONE [Suspect]
     Indication: DIFFUSE LARGE B-CELL LYMPHOMA
     Dosage: 40 MG/M2 EVERY OTHER DAY WEEKS 1-10, TAPERED DURING WEEKS 11 AND 12, ORAL
     Route: 048
  7. CO-TRIMOXAZOLE (CO-TRIMOXAZOLE) [Concomitant]
  8. FLUCONAZOLE [Concomitant]
  9. RANITIDINE [Concomitant]
  10. ACYCLOVIR [Concomitant]

REACTIONS (2)
  - EPSTEIN-BARR VIRUS ASSOCIATED LYMPHOPROLIFERATIVE DISORDER [None]
  - MUCOSAL INFLAMMATION [None]
